FAERS Safety Report 5404253-2 (Version None)
Quarter: 2007Q3

REPORT INFORMATION
  Report Type: 
  Country: None (occurrence: None)
  Receive Date: 20070802
  Receipt Date: 20070801
  Transmission Date: 20080115
  Serious: Yes (Death)
  Sender: FDA-Public Use
  Company Number: JP-BRISTOL-MYERS SQUIBB COMPANY-13851050

PATIENT
  Age: 60 Year
  Sex: Female

DRUGS (8)
  1. ARIPIPRAZOLE [Suspect]
     Indication: SCHIZOPHRENIA
     Dosage: THERAPY DURATION 1 YEAR 5 DAYS
     Route: 048
     Dates: start: 20060703, end: 20070707
  2. FLUNITRAZEPAM [Concomitant]
     Indication: INSOMNIA
     Dosage: DURATION:1 YEAR 14 WEEKS
     Route: 048
     Dates: start: 20060401, end: 20070707
  3. CLONAZEPAM [Concomitant]
     Indication: INSOMNIA
     Dosage: DURATION: 1 YEAR 14 WEEKS
     Route: 048
     Dates: start: 20060401, end: 20070707
  4. FUROSEMIDE [Concomitant]
     Indication: OEDEMA PERIPHERAL
     Dosage: DURATION: 1 YEAR 14 WEEKS
     Route: 048
     Dates: start: 20070401, end: 20070707
  5. SENNOSIDE [Concomitant]
     Indication: CONSTIPATION
     Dosage: DURATION: 1 YEAR 14 WEEKS
     Route: 048
     Dates: start: 20060401, end: 20070707
  6. MAGNESIUM OXIDE [Concomitant]
     Indication: CONSTIPATION
     Dosage: DURATION: 1 YEAR 14 WEEKS
     Route: 048
     Dates: start: 20060401, end: 20070707
  7. MAINTENANCE MEDIUM [Concomitant]
     Indication: DEHYDRATION
     Route: 042
     Dates: start: 20070707, end: 20070710
  8. AMINO ACIDS W/GLUCOSE [Concomitant]
     Indication: DEHYDRATION
     Route: 041
     Dates: start: 20070707, end: 20070710

REACTIONS (1)
  - SUDDEN DEATH [None]
